FAERS Safety Report 6804095-7 (Version None)
Quarter: 2010Q2

REPORT INFORMATION
  Report Type: 
  Country: None (occurrence: None)
  Receive Date: 20100628
  Receipt Date: 20061226
  Transmission Date: 20101027
  Serious: No
  Sender: FDA-Public Use
  Company Number: US-PFIZER INC-2006125770

PATIENT
  Sex: Female
  Weight: 72.12 kg

DRUGS (4)
  1. CABERGOLINE [Suspect]
     Indication: PITUITARY TUMOUR BENIGN
     Dosage: 2 EVERY 1 WEEKS
     Route: 048
     Dates: start: 20060329, end: 20060913
  2. CABERGOLINE [Suspect]
     Indication: HYPERPROLACTINAEMIA
  3. DOSTINEX [Suspect]
     Indication: PITUITARY TUMOUR
     Dosage: 2 EVERY 1 WEEKS
     Dates: start: 20020101
  4. LEVOXYL [Concomitant]
     Indication: THYROID DISORDER
     Dates: start: 20040101

REACTIONS (5)
  - HEADACHE [None]
  - INSOMNIA [None]
  - MALAISE [None]
  - NAUSEA [None]
  - PSYCHOMOTOR HYPERACTIVITY [None]
